FAERS Safety Report 10597979 (Version 7)
Quarter: 2015Q1

REPORT INFORMATION
  Report Type: Spontaneous
  Country: US (occurrence: US)
  Receive Date: 20141121
  Receipt Date: 20150304
  Transmission Date: 20150720
  Serious: Yes (Hospitalization, Other)
  Sender: FDA-Public Use
  Company Number: US-JNJFOC-20141109876

PATIENT
  Age: 70 Year
  Sex: Female
  Weight: 59 kg

DRUGS (2)
  1. XARELTO [Suspect]
     Active Substance: RIVAROXABAN
     Indication: CEREBROVASCULAR ACCIDENT PROPHYLAXIS
     Route: 048
  2. XARELTO [Suspect]
     Active Substance: RIVAROXABAN
     Indication: ATRIAL FIBRILLATION
     Route: 048

REACTIONS (9)
  - Fall [Unknown]
  - Subdural haematoma [Recovered/Resolved]
  - Traumatic haemorrhage [Recovered/Resolved]
  - Herpes zoster [Unknown]
  - Hyponatraemia [Unknown]
  - Hyperhidrosis [Unknown]
  - Limb discomfort [Unknown]
  - Ligament sprain [Unknown]
  - Insomnia [Unknown]

NARRATIVE: CASE EVENT DATE: 201405
